FAERS Safety Report 8328610-X (Version None)
Quarter: 2012Q2

REPORT INFORMATION
  Report Type: 
  Country: None (occurrence: None)
  Receive Date: 20120502
  Receipt Date: 20100803
  Transmission Date: 20120825
  Serious: No
  Sender: FDA-Public Use
  Company Number: US-TEVA-2010004069

PATIENT
  Sex: Female
  Weight: 78.996 kg

DRUGS (4)
  1. NUVIGIL [Suspect]
     Dosage: 250 MILLIGRAM;
     Route: 048
  2. EFFEXOR [Concomitant]
  3. NUVIGIL [Suspect]
     Indication: SLEEP APNOEA SYNDROME
     Dosage: 150 MILLIGRAM;
     Route: 048
  4. TAMOXIFEN CITRATE [Concomitant]

REACTIONS (2)
  - SWOLLEN TONGUE [None]
  - BRUXISM [None]
